FAERS Safety Report 8155004-2 (Version None)
Quarter: 2012Q1

REPORT INFORMATION
  Report Type: 
  Country: None (occurrence: None)
  Receive Date: 20120221
  Receipt Date: 20120217
  Transmission Date: 20120608
  Serious: Yes (Other)
  Sender: FDA-Public Use
  Company Number: PHEH2012US004043

PATIENT
  Sex: Female

DRUGS (1)
  1. VALTURNA [Suspect]

REACTIONS (1)
  - CARDIAC DISORDER [None]
